FAERS Safety Report 15616268 (Version 4)
Quarter: 2019Q4

REPORT INFORMATION
  Report Type: Spontaneous
  Country: US (occurrence: US)
  Receive Date: 20181114
  Receipt Date: 20191211
  Transmission Date: 20200122
  Serious: No
  Sender: FDA-Public Use
  Company Number: US-PFIZER INC-2017015870

PATIENT
  Age: 65 Year
  Sex: Female
  Weight: 104.31 kg

DRUGS (5)
  1. MELATONIN [Concomitant]
     Active Substance: MELATONIN
     Dosage: 6 MG, 1X/DAY (2-3 HOURS PRIOR TO BEDTIME)
     Route: 048
  2. ATENOLOL. [Concomitant]
     Active Substance: ATENOLOL
     Dosage: 100 MG, DAILY
     Route: 048
  3. LYRICA [Suspect]
     Active Substance: PREGABALIN
     Indication: POLYNEUROPATHY
     Dosage: 400 MG, DAILY(1 CAPSULE IN MORNING,1CAPSULE IN THE AFTERNOON,2 CAPSULES IN THE EVENING)
     Route: 048
  4. TRIAMTERENE AND HYDROCHLOROTHIAZIDE [Concomitant]
     Active Substance: HYDROCHLOROTHIAZIDE\TRIAMTERENE
     Dosage: UNK(TRIAMTERENE 37.5 MG, HYDROCHLOROTHIAZIDE 25 MG)
     Route: 048
  5. LYRICA [Suspect]
     Active Substance: PREGABALIN
     Indication: NEUROPATHY PERIPHERAL
     Dosage: 300 MG, DAILY (TAKE 1 CAPSULE IN THE MORNING, 1 CAPSULE IN THE AFTERNOON, AND 1 CAPSULES IN THE EVE)
     Route: 048

REACTIONS (1)
  - Withdrawal syndrome [Unknown]
